FAERS Safety Report 6377578-4 (Version None)
Quarter: 2009Q3

REPORT INFORMATION
  Report Type: 
  Country: None (occurrence: None)
  Receive Date: 20090925
  Receipt Date: 20090917
  Transmission Date: 20100115
  Serious: Yes (Life-Threatening, Other)
  Sender: FDA-Public Use
  Company Number: US-TYCO HEALTHCARE/MALLINCKRODT-T200901742

PATIENT
  Age: 17 Year

DRUGS (2)
  1. METHADOSE [Suspect]
     Dosage: 25 MG, BID
  2. METHYLIN [Concomitant]
     Indication: TRAUMATIC BRAIN INJURY

REACTIONS (4)
  - DRUG DISPENSING ERROR [None]
  - DRUG NAME CONFUSION [None]
  - RESPIRATORY ARREST [None]
  - WRONG DRUG ADMINISTERED [None]
